FAERS Safety Report 8073657-4 (Version None)
Quarter: 2012Q1

REPORT INFORMATION
  Report Type: 
  Country: None (occurrence: None)
  Receive Date: 20120126
  Receipt Date: 20120116
  Transmission Date: 20120608
  Serious: Yes (Hospitalization)
  Sender: FDA-Public Use
  Company Number: US-ROCHE-1016003

PATIENT
  Sex: Female

DRUGS (4)
  1. PEGINTERFERON ALFA-2A [Suspect]
     Indication: HEPATITIS C
     Dates: start: 20110815
  2. COPEGUS [Suspect]
  3. TELAPREVIR [Suspect]
     Indication: HEPATITIS C
     Dates: start: 20110912
  4. COPEGUS [Suspect]
     Indication: HEPATITIS C
     Dates: start: 20110815

REACTIONS (4)
  - ANAEMIA [None]
  - DYSGEUSIA [None]
  - BLOOD SODIUM DECREASED [None]
  - FATIGUE [None]
